FAERS Safety Report 23394827 (Version 1)
Quarter: 2024Q1

REPORT INFORMATION
  Report Type: Other
  Country: US (occurrence: None)
  Receive Date: 20240112
  Receipt Date: 20240112
  Transmission Date: 20240410
  Serious: Yes (Other)
  Sender: FDA-Public Use
  Company Number: US-ROCHE-3488501

PATIENT

DRUGS (2)
  1. RITUXIMAB [Suspect]
     Active Substance: RITUXIMAB
     Indication: B-cell lymphoma
     Dosage: ON DAYS 1, 8, AND 15. CYCLES REPEAT EVERY 28 DAYS
     Route: 041
  2. PACLITAXEL [Suspect]
     Active Substance: PACLITAXEL
     Indication: B-cell lymphoma
     Dosage: ON DAYS 1, 8, AND 15. CYCLES REPEAT EVERY 28 DAYS
     Route: 042

REACTIONS (4)
  - Neutropenia [Unknown]
  - Enterocolitis [Unknown]
  - Decreased appetite [Unknown]
  - Diarrhoea [Unknown]
